FAERS Safety Report 9473302 (Version 1)
Quarter: 2013Q3

REPORT INFORMATION
  Report Type: Spontaneous
  Country: US (occurrence: US)
  Receive Date: 20130823
  Receipt Date: 20130823
  Transmission Date: 20140515
  Serious: Yes (Other)
  Sender: FDA-Public Use
  Company Number: US-BRISTOL-MYERS SQUIBB COMPANY-18862847

PATIENT
  Age: 60 Year
  Sex: Male

DRUGS (1)
  1. SPRYCEL [Suspect]
     Dosage: :28 PILLS
     Dates: start: 20130309

REACTIONS (2)
  - Angina pectoris [Recovering/Resolving]
  - Atrial fibrillation [Recovering/Resolving]
